FAERS Safety Report 5106859-7 (Version None)
Quarter: 2006Q3

REPORT INFORMATION
  Report Type: 
  Country: None (occurrence: None)
  Receive Date: 20060913
  Receipt Date: 20060831
  Transmission Date: 20061208
  Serious: Yes (Other)
  Sender: FDA-Public Use
  Company Number: POMP-10806

PATIENT
  Age: 13 Month
  Sex: Male
  Weight: 8.99 kg

DRUGS (4)
  1. MYOZYME [Suspect]
     Indication: GLYCOGEN STORAGE DISEASE TYPE II
     Dosage: 20 MG/KG IV
     Route: 042
     Dates: start: 20051222
  2. PROPRANOLOL [Concomitant]
  3. CAPTOPRIL [Concomitant]
  4. LASIX [Concomitant]

REACTIONS (13)
  - BRONCHOSPASM [None]
  - COMPLEMENT FACTOR INCREASED [None]
  - CYANOSIS [None]
  - ERYTHEMA [None]
  - INFUSION RELATED REACTION [None]
  - LETHARGY [None]
  - OXYGEN SATURATION DECREASED [None]
  - PALLOR [None]
  - RASH [None]
  - TACHYCARDIA [None]
  - TACHYPNOEA [None]
  - TREMOR [None]
  - VOMITING [None]
